FAERS Safety Report 24067030 (Version 5)
Quarter: 2025Q1

REPORT INFORMATION
  Report Type: Report from Study
  Country: IN (occurrence: IN)
  Receive Date: 20240709
  Receipt Date: 20250122
  Transmission Date: 20250409
  Serious: Yes (Other)
  Sender: INCYTE
  Company Number: IN-002147023-NVSC2023IN261487

PATIENT

DRUGS (5)
  1. RUXOLITINIB [Suspect]
     Active Substance: RUXOLITINIB
     Indication: Primary myelofibrosis
     Route: 048
  2. RUXOLITINIB [Suspect]
     Active Substance: RUXOLITINIB
     Dosage: 10 MG, BID
     Route: 048
     Dates: start: 20230830
  3. RUXOLITINIB [Suspect]
     Active Substance: RUXOLITINIB
     Dosage: 5 MG, BID (1-0-1)
     Route: 048
     Dates: start: 20230901
  4. RUXOLITINIB [Suspect]
     Active Substance: RUXOLITINIB
     Route: 065
  5. RUXOLITINIB [Suspect]
     Active Substance: RUXOLITINIB
     Dosage: 10 MG, BID (5 MG 2-0-2)
     Route: 048
     Dates: start: 20231121

REACTIONS (40)
  - Platelet count abnormal [Unknown]
  - Anaemia [Unknown]
  - Decreased appetite [Unknown]
  - Inguinal hernia [Unknown]
  - Cholelithiasis [Unknown]
  - Liver disorder [Unknown]
  - Dry mouth [Unknown]
  - Varices oesophageal [Unknown]
  - Fatigue [Unknown]
  - Eosinophil percentage increased [Unknown]
  - Red blood cell abnormality [Unknown]
  - Prostatomegaly [Unknown]
  - Pyrexia [Unknown]
  - Nasopharyngitis [Unknown]
  - Cough [Unknown]
  - Head discomfort [Unknown]
  - Marrow hyperplasia [Unknown]
  - Myelofibrosis [Unknown]
  - Blood lactate dehydrogenase increased [Unknown]
  - Dysmegakaryopoiesis [Unknown]
  - Blast cell count increased [Unknown]
  - Hepatomegaly [Unknown]
  - Leukoerythroblastic anaemia [Unknown]
  - Anaemia macrocytic [Unknown]
  - Mean cell haemoglobin concentration abnormal [Unknown]
  - Gastritis [Unknown]
  - Neutrophil count abnormal [Unknown]
  - Abdominal distension [Unknown]
  - Splenomegaly [Unknown]
  - Normochromic anaemia [Unknown]
  - Hypoaesthesia [Unknown]
  - Haematocrit abnormal [Unknown]
  - Arthralgia [Unknown]
  - Red blood cell sedimentation rate abnormal [Unknown]
  - Red cell distribution width abnormal [Unknown]
  - Peripheral swelling [Unknown]
  - Thrombocytopenia [Unknown]
  - Portal hypertension [Unknown]
  - Weight increased [Unknown]
  - Weight decreased [Unknown]

NARRATIVE: CASE EVENT DATE: 20230927
